FAERS Safety Report 18442198 (Version 6)
Quarter: 2021Q1

REPORT INFORMATION
  Report Type: Report from Study
  Country: CL (occurrence: CL)
  Receive Date: 20201029
  Receipt Date: 20210304
  Transmission Date: 20210419
  Serious: Yes (Hospitalization)
  Sender: FDA-Public Use
  Company Number: CL-BRISTOL-MYERS SQUIBB COMPANY-BMS-2020-088615

PATIENT
  Age: 30 Year
  Sex: Female
  Weight: 126 kg

DRUGS (17)
  1. ACETAMINOPHEN. [Concomitant]
     Active Substance: ACETAMINOPHEN
     Indication: PYREXIA
     Dosage: 3 GRAM
     Route: 048
     Dates: start: 20200215, end: 20200219
  2. ACETAMINOPHEN. [Concomitant]
     Active Substance: ACETAMINOPHEN
     Indication: LOWER LIMB FRACTURE
     Dosage: 3.0 GRAM
     Route: 048
     Dates: start: 20200809, end: 20201019
  3. SODIUM PICOSULPHATE [Concomitant]
     Active Substance: SODIUM PICOSULFATE
     Indication: PRODUCT USED FOR UNKNOWN INDICATION
     Dosage: 1 DOSAGE FORM: 4 UNITS NOS
     Route: 048
     Dates: start: 20200816, end: 20201019
  4. ONDANSETRON [Concomitant]
     Active Substance: ONDANSETRON
     Indication: PROPHYLAXIS
     Dosage: 12 MILLIGRAM
     Route: 042
     Dates: start: 20201020, end: 20201026
  5. IPILIMUMAB [Suspect]
     Active Substance: IPILIMUMAB
     Indication: RENAL CELL CARCINOMA
     Dosage: 50 MILLILITER
     Route: 042
     Dates: start: 20191219
  6. NIVOLUMAB [Suspect]
     Active Substance: NIVOLUMAB
     Indication: RENAL CELL CARCINOMA
     Dosage: 100 MILLILITER
     Route: 042
     Dates: start: 20191219
  7. CELECOXIB. [Concomitant]
     Active Substance: CELECOXIB
     Indication: LOWER LIMB FRACTURE
     Dosage: 600 MILLIGRAM
     Route: 048
     Dates: start: 20200817, end: 20201019
  8. RIVAROXABAN [Concomitant]
     Active Substance: RIVAROXABAN
     Indication: PRODUCT USED FOR UNKNOWN INDICATION
     Dosage: 20 MILLIGRAM
     Route: 048
     Dates: start: 20200817, end: 20201019
  9. ACETAMINOPHEN. [Concomitant]
     Active Substance: ACETAMINOPHEN
     Dosage: 3.0 GRAM
     Route: 042
     Dates: start: 20201020, end: 20201021
  10. TRAMADOL. [Concomitant]
     Active Substance: TRAMADOL
     Indication: LOWER LIMB FRACTURE
     Dosage: 1 DF= 5 UNITS NOS
     Route: 048
     Dates: start: 20200817, end: 20201019
  11. DULCOLAX (BISACODYL) [Concomitant]
     Active Substance: BISACODYL
     Indication: PROPHYLAXIS
     Dosage: 1 DOSAGE FORM: 2 UNIT NOS
     Route: 048
     Dates: start: 20200817, end: 20201019
  12. ACETAMINOPHEN. [Concomitant]
     Active Substance: ACETAMINOPHEN
     Indication: PROPHYLAXIS
     Dosage: 1 GRAM
     Route: 048
     Dates: start: 20200817, end: 20201019
  13. ENOXAPARIN [Concomitant]
     Active Substance: ENOXAPARIN
     Indication: PROPHYLAXIS
     Dosage: 40 MILLIGRAM
     Route: 058
     Dates: start: 20201020, end: 20201021
  14. PIPERACILLIN/TAZOBACTAM [Concomitant]
     Active Substance: PIPERACILLIN SODIUM\TAZOBACTAM SODIUM
     Indication: PROPHYLAXIS
     Dosage: 13.5 GRAM
     Route: 042
     Dates: start: 20201020, end: 20201020
  15. SALINE [SODIUM CHLORIDE] [Concomitant]
     Active Substance: SODIUM CHLORIDE
     Indication: PROPHYLAXIS
     Dosage: 1 DOSAGE FORM: 4800 UNITS NOS
     Route: 042
     Dates: start: 20201020, end: 20201022
  16. TRAMAL LONG [Concomitant]
     Active Substance: TRAMADOL
     Indication: PROPHYLAXIS
     Dosage: 100 MILLIGRAM
     Route: 048
     Dates: start: 20201020, end: 20201024
  17. FENTANYL. [Concomitant]
     Active Substance: FENTANYL
     Indication: PRODUCT USED FOR UNKNOWN INDICATION
     Dosage: 1 DOSAGE FORM: 25 UNITS NOS
     Route: 042
     Dates: start: 20201020, end: 20201026

REACTIONS (1)
  - Hypercalcaemia [Recovering/Resolving]

NARRATIVE: CASE EVENT DATE: 20201020
